FAERS Safety Report 10361212 (Version 2)
Quarter: 2014Q3

REPORT INFORMATION
  Report Type: Spontaneous
  Country: US (occurrence: None)
  Receive Date: 20140731
  Receipt Date: 20140813
  Transmission Date: 20150326
  Serious: Yes (Other)
  Sender: FDA-Public Use
  Company Number: US-016532

PATIENT
  Age: 81 Year
  Sex: Male
  Weight: 89.8 kg

DRUGS (6)
  1. DEGARELIX [Suspect]
     Active Substance: DEGARELIX
     Indication: PROSTATE CANCER
     Route: 058
     Dates: start: 20130820, end: 20130820
  2. CENTRUM SILVER [Concomitant]
     Active Substance: VITAMINS
  3. OCUVITE [Concomitant]
     Active Substance: VITAMINS
  4. AMLODIPINE [Concomitant]
     Active Substance: AMLODIPINE BESYLATE
  5. CASODEX [Concomitant]
     Active Substance: BICALUTAMIDE
  6. VALERIAN [Concomitant]
     Active Substance: VALERIAN

REACTIONS (2)
  - Injection site swelling [None]
  - Injection site abscess [None]

NARRATIVE: CASE EVENT DATE: 20140625
